FAERS Safety Report 6942399-8 (Version None)
Quarter: 2010Q3

REPORT INFORMATION
  Report Type: 
  Country: None (occurrence: None)
  Receive Date: 20100826
  Receipt Date: 20100819
  Transmission Date: 20110219
  Serious: Yes (Death)
  Sender: FDA-Public Use
  Company Number: PHHY2010US55644

PATIENT
  Sex: Male

DRUGS (2)
  1. AFINITOR [Suspect]
     Indication: NEUROENDOCRINE TUMOUR
     Dosage: 5 MG, QD
  2. TEMODAR [Concomitant]

REACTIONS (1)
  - DEATH [None]
